FAERS Safety Report 7488978-3 (Version None)
Quarter: 2011Q2

REPORT INFORMATION
  Report Type: 
  Country: None (occurrence: None)
  Receive Date: 20110511
  Receipt Date: 20110426
  Transmission Date: 20111010
  Serious: Yes (Hospitalization, Other)
  Sender: FDA-Public Use
  Company Number: 030739

PATIENT
  Sex: Female
  Weight: 73 kg

DRUGS (16)
  1. ACETAMINOPHEN [Concomitant]
  2. ALBUTEROL SULFATE AUTOHALER [Concomitant]
  3. ALLEGRA [Concomitant]
  4. AZITHROMYCIN [Concomitant]
  5. BENADRYL [Concomitant]
  6. AMITRIPTYLINE HCL [Concomitant]
  7. IBUPROFEN [Concomitant]
  8. CIMZIA [Suspect]
     Indication: CROHN'S DISEASE
     Dosage: 400 MG 1X/2 WEEKS SUBCUTANEOUS, 400 MG 1X/MONTH SUBCUTANEOUS, 400 MG 1X/4 WEEKS SUBCUTANEOUS
     Route: 058
     Dates: start: 20091109, end: 20091207
  9. CIMZIA [Suspect]
     Indication: CROHN'S DISEASE
     Dosage: 400 MG 1X/2 WEEKS SUBCUTANEOUS, 400 MG 1X/MONTH SUBCUTANEOUS, 400 MG 1X/4 WEEKS SUBCUTANEOUS
     Route: 058
     Dates: start: 20110414
  10. CIMZIA [Suspect]
     Indication: CROHN'S DISEASE
     Dosage: 400 MG 1X/2 WEEKS SUBCUTANEOUS, 400 MG 1X/MONTH SUBCUTANEOUS, 400 MG 1X/4 WEEKS SUBCUTANEOUS
     Route: 058
     Dates: start: 20100104, end: 20110301
  11. IMODIUM [Concomitant]
  12. CELEXA [Concomitant]
  13. METHOTREXATE [Suspect]
     Indication: CROHN'S DISEASE
     Dosage: SUBCUTANEOUS, SUBCUTANEOUS, SUBCUTANEOUS, 25MG/ML SOULTION 0.8 ML SUBCUTANEOUS
     Route: 058
     Dates: start: 20090501
  14. METHOTREXATE [Suspect]
     Indication: CROHN'S DISEASE
     Dosage: SUBCUTANEOUS, SUBCUTANEOUS, SUBCUTANEOUS, 25MG/ML SOULTION 0.8 ML SUBCUTANEOUS
     Route: 058
     Dates: start: 20080703, end: 20090304
  15. METHOTREXATE [Suspect]
     Indication: CROHN'S DISEASE
     Dosage: SUBCUTANEOUS, SUBCUTANEOUS, SUBCUTANEOUS, 25MG/ML SOULTION 0.8 ML SUBCUTANEOUS
     Route: 058
     Dates: start: 20071001, end: 20080101
  16. METHOTREXATE [Suspect]
     Indication: CROHN'S DISEASE
     Dosage: SUBCUTANEOUS, SUBCUTANEOUS, SUBCUTANEOUS, 25MG/ML SOULTION 0.8 ML SUBCUTANEOUS
     Route: 058
     Dates: start: 20000101, end: 20020101

REACTIONS (25)
  - SMALL INTESTINAL OBSTRUCTION [None]
  - STAPHYLOCOCCAL INFECTION [None]
  - OPPORTUNISTIC INFECTION [None]
  - NAUSEA [None]
  - FISTULA [None]
  - RENAL FAILURE ACUTE [None]
  - PSORIASIS [None]
  - GENITAL HERPES [None]
  - ARTHRITIS [None]
  - VOMITING [None]
  - INFLUENZA [None]
  - ABDOMINAL PAIN [None]
  - DEHYDRATION [None]
  - FIBROMYALGIA [None]
  - CATHETER SITE INFECTION [None]
  - SEPTIC SHOCK [None]
  - KLEBSIELLA BACTERAEMIA [None]
  - ABSCESS [None]
  - SHORT-BOWEL SYNDROME [None]
  - STAPHYLOCOCCAL BACTERAEMIA [None]
  - HYPOTENSION [None]
  - DEVICE RELATED INFECTION [None]
  - ENTEROCOCCAL INFECTION [None]
  - ARTHRALGIA [None]
  - CELLULITIS [None]
